FAERS Safety Report 10170385 (Version 5)
Quarter: 2014Q3

REPORT INFORMATION
  Report Type: Report from Study
  Country: MX (occurrence: MX)
  Receive Date: 20140513
  Receipt Date: 20140708
  Transmission Date: 20150326
  Serious: Yes (Hospitalization, Other)
  Sender: FDA-Public Use
  Company Number: MX-ABBVIE-14P-107-1236709-00

PATIENT
  Age: 79 Year
  Sex: Female
  Weight: 68.5 kg

DRUGS (11)
  1. STUTGERON [Concomitant]
     Route: 048
     Dates: start: 201406
  2. FOLIC ACID. [Concomitant]
     Active Substance: FOLIC ACID
     Route: 048
     Dates: start: 201406
  3. METHOTREXATE (METHOTREXATE SODIUM) [Concomitant]
     Active Substance: METHOTREXATE SODIUM
     Indication: RHEUMATOID ARTHRITIS
     Route: 048
     Dates: start: 20110216
  4. DIABEX S.R. [Concomitant]
     Active Substance: METFORMIN HYDROCHLORIDE
     Indication: TYPE 2 DIABETES MELLITUS
     Route: 048
     Dates: start: 2002
  5. HUMIRA [Suspect]
     Active Substance: ADALIMUMAB
     Route: 058
  6. HUMIRA [Suspect]
     Active Substance: ADALIMUMAB
     Indication: RHEUMATOID ARTHRITIS
     Route: 058
     Dates: start: 20130126
  7. STUTGERON [Concomitant]
     Indication: VERTIGO
     Route: 048
     Dates: start: 2008
  8. PLAQUINOL [Concomitant]
     Active Substance: HYDROXYCHLOROQUINE SULFATE
     Route: 048
     Dates: start: 201406
  9. FOLIC ACID. [Concomitant]
     Active Substance: FOLIC ACID
     Indication: VITAMIN SUPPLEMENTATION
     Route: 048
     Dates: start: 20130116
  10. PLAQUINOL [Concomitant]
     Active Substance: HYDROXYCHLOROQUINE SULFATE
     Indication: RHEUMATOID ARTHRITIS
     Route: 048
     Dates: start: 20110216
  11. METHOTREXATE (METHOTREXATE SODIUM) [Concomitant]
     Active Substance: METHOTREXATE SODIUM
     Route: 048
     Dates: start: 201406

REACTIONS (10)
  - Fall [Unknown]
  - Ulcer [Unknown]
  - Haemoglobin decreased [Unknown]
  - Nausea [Recovering/Resolving]
  - Vertigo [Recovering/Resolving]
  - Wrist fracture [Recovering/Resolving]
  - Spinal fracture [Unknown]
  - Gastrointestinal haemorrhage [Recovering/Resolving]
  - Spinal fracture [Recovering/Resolving]
  - Haematochezia [Recovering/Resolving]

NARRATIVE: CASE EVENT DATE: 20140415
